FAERS Safety Report 10067724 (Version 1)
Quarter: 2014Q2

REPORT INFORMATION
  Report Type: Spontaneous
  Country: US (occurrence: None)
  Receive Date: 20140408
  Receipt Date: 20140408
  Transmission Date: 20141212
  Serious: Yes (Hospitalization)
  Sender: FDA-Public Use
  Company Number: None

PATIENT
  Age: 54 Year
  Sex: Male
  Weight: 121 kg

DRUGS (1)
  1. CISPLATIN [Suspect]

REACTIONS (4)
  - Abdominal pain [None]
  - Abdominal distension [None]
  - Decreased appetite [None]
  - Mesenteric vein thrombosis [None]
